FAERS Safety Report 10181557 (Version 1)
Quarter: 2014Q2

REPORT INFORMATION
  Report Type: Report from Study
  Country: US (occurrence: US)
  Receive Date: 20140519
  Receipt Date: 20140519
  Transmission Date: 20141212
  Serious: Yes (Other)
  Sender: FDA-Public Use
  Company Number: US-SA-2014SA061563

PATIENT
  Age: 31 Year
  Sex: Female

DRUGS (3)
  1. AUBAGIO [Suspect]
     Indication: MULTIPLE SCLEROSIS
     Route: 048
     Dates: start: 20130412, end: 201401
  2. AVONEX [Concomitant]
  3. COPAXONE [Concomitant]

REACTIONS (6)
  - Abortion spontaneous [Recovered/Resolved]
  - Abdominal discomfort [Unknown]
  - Nasopharyngitis [Unknown]
  - Cough [Unknown]
  - Vomiting [Unknown]
  - Headache [Unknown]
